FAERS Safety Report 22294679 (Version 1)
Quarter: 2023Q2

REPORT INFORMATION
  Report Type: Spontaneous
  Country: US (occurrence: US)
  Receive Date: 20230508
  Receipt Date: 20230508
  Transmission Date: 20230722
  Serious: No
  Sender: FDA-Public Use
  Company Number: US-AMNEAL PHARMACEUTICALS-2022-AMRX-03483

PATIENT
  Sex: Male
  Weight: 75.737 kg

DRUGS (1)
  1. DICLOFENAC SODIUM [Suspect]
     Active Substance: DICLOFENAC SODIUM
     Indication: Neuralgia
     Dosage: UNK
     Route: 061

REACTIONS (1)
  - Drug ineffective for unapproved indication [Unknown]
